FAERS Safety Report 19965277 (Version 3)
Quarter: 2021Q4

REPORT INFORMATION
  Report Type: Report from Study
  Country: DE (occurrence: DE)
  Receive Date: 20211018
  Receipt Date: 20211029
  Transmission Date: 20220303
  Serious: Yes (Hospitalization, Other)
  Sender: FDA-Public Use
  Company Number: DE-BIOGEN-2021BI01058606

PATIENT
  Sex: Female

DRUGS (3)
  1. PLEGRIDY [Suspect]
     Active Substance: PEGINTERFERON BETA-1A
     Indication: Maternal exposure timing unspecified
     Route: 064
     Dates: start: 20141115, end: 20160614
  2. PLEGRIDY [Suspect]
     Active Substance: PEGINTERFERON BETA-1A
  3. VITAMIN D3 [Concomitant]
     Active Substance: CHOLECALCIFEROL
     Indication: Product used for unknown indication
     Dosage: 2000
     Route: 065

REACTIONS (4)
  - Jaundice [Recovered/Resolved]
  - Premature baby [Recovered/Resolved]
  - Foetal exposure during pregnancy [Recovered/Resolved]
  - Exposure via breast milk [Recovered/Resolved]

NARRATIVE: CASE EVENT DATE: 20170108
